FAERS Safety Report 7445603-5 (Version None)
Quarter: 2011Q2

REPORT INFORMATION
  Report Type: 
  Country: None (occurrence: None)
  Receive Date: 20110429
  Receipt Date: 20110422
  Transmission Date: 20111010
  Serious: Yes (Hospitalization)
  Sender: FDA-Public Use
  Company Number: JP-ROCHE-770655

PATIENT
  Sex: Male
  Weight: 33 kg

DRUGS (10)
  1. ACTEMRA [Suspect]
     Dosage: IT ADMINISTERS IT BY THE INTERVAL FOR 1-2 WEEKS.
     Route: 041
     Dates: start: 20080922, end: 20090101
  2. ACTEMRA [Suspect]
     Route: 041
     Dates: start: 20090501, end: 20090528
  3. FUNGIZONE [Concomitant]
     Dosage: DOSE FORM: RESPIRATORY TONIC
     Route: 055
     Dates: start: 20100607
  4. ACTEMRA [Suspect]
     Route: 041
     Dates: start: 20090101, end: 20090101
  5. FAMOTIDINE [Concomitant]
     Route: 048
  6. ACTEMRA [Suspect]
     Indication: JUVENILE ARTHRITIS
     Route: 041
     Dates: start: 20080603, end: 20080905
  7. ATARAX [Concomitant]
     Route: 048
     Dates: start: 20110316
  8. ACTEMRA [Suspect]
     Route: 041
     Dates: start: 20091009
  9. PREDNISOLONE [Concomitant]
     Dosage: DOSE FORM: PERORAL AGENT IN THE MORNING: IN 3MG AND THE EVENINGS: 1MG.
     Route: 048
     Dates: start: 20110304
  10. ONEALFA [Concomitant]
     Route: 048

REACTIONS (12)
  - MYOCARDITIS [None]
  - FLUID RETENTION [None]
  - HISTIOCYTOSIS HAEMATOPHAGIC [None]
  - MUSCULOSKELETAL PAIN [None]
  - MALAISE [None]
  - VOMITING [None]
  - HYPERTHERMIA [None]
  - RENAL FAILURE [None]
  - CHEST PAIN [None]
  - OLIGURIA [None]
  - GASTROENTERITIS [None]
  - DIARRHOEA [None]
